FAERS Safety Report 18013281 (Version 5)
Quarter: 2021Q3

REPORT INFORMATION
  Report Type: Spontaneous
  Country: US (occurrence: US)
  Receive Date: 20200713
  Receipt Date: 20210907
  Transmission Date: 20211014
  Serious: No
  Sender: FDA-Public Use
  Company Number: US-PFIZER INC-2020266374

PATIENT
  Age: 90 Year
  Sex: Female

DRUGS (2)
  1. OMEPRAZOLE. [Suspect]
     Active Substance: OMEPRAZOLE
     Dosage: UNK
  2. IBRANCE [Suspect]
     Active Substance: PALBOCICLIB
     Indication: BREAST CANCER METASTATIC
     Dosage: 125 MG, CYCLIC, (ONCE DAILY FOR 3 WEEKS AND THEN OFF FOR 1 WEEK)
     Dates: start: 202005

REACTIONS (6)
  - Neoplasm progression [Unknown]
  - Reaction to excipient [Unknown]
  - Rash [Not Recovered/Not Resolved]
  - Hypogeusia [Unknown]
  - Condition aggravated [Unknown]
  - Hypoacusis [Unknown]

NARRATIVE: CASE EVENT DATE: 2020
